FAERS Safety Report 4573054-X (Version None)
Quarter: 2005Q1

REPORT INFORMATION
  Report Type: 
  Country: None (occurrence: None)
  Receive Date: 20050204
  Receipt Date: 20050117
  Transmission Date: 20050727
  Serious: Yes (Hospitalization)
  Sender: FDA-Public Use
  Company Number: SHI_00008_2005

PATIENT
  Age: 57 Year
  Sex: Male
  Weight: 80 kg

DRUGS (3)
  1. KEIMAX [Suspect]
     Indication: BRONCHITIS
     Dosage: 400 MG QD PO
     Route: 048
     Dates: start: 20000602, end: 20000605
  2. KEIMAX [Suspect]
     Indication: PYREXIA
     Dosage: 400 MG QD PO
     Route: 048
     Dates: start: 20000602, end: 20000605
  3. FRUSHSOMMER [Concomitant]

REACTIONS (2)
  - DRUG INEFFECTIVE [None]
  - PNEUMONIA [None]
